FAERS Safety Report 16731103 (Version 1)
Quarter: 2019Q4

REPORT INFORMATION
  Report Type: Spontaneous
  Country: US (occurrence: US)
  Receive Date: 20190822
  Receipt Date: 20190822
  Transmission Date: 20200122
  Serious: Yes (Hospitalization)
  Sender: FDA-Public Use
  Company Number: None

PATIENT
  Age: 63 Year
  Sex: Female
  Weight: 62.1 kg

DRUGS (6)
  1. PANTOPRAZOLE [Concomitant]
     Active Substance: PANTOPRAZOLE
  2. OMEGA COMPLETE [Concomitant]
  3. MULTI VITAMINS [Concomitant]
     Active Substance: VITAMINS
  4. RED YEAST [Concomitant]
     Active Substance: YEAST
  5. LISINOPRIL. [Concomitant]
     Active Substance: LISINOPRIL
  6. RECLAST [Suspect]
     Active Substance: ZOLEDRONIC ACID
     Indication: OSTEOPOROSIS
     Route: 042
     Dates: start: 20190819, end: 20190819

REACTIONS (7)
  - Back pain [None]
  - Chest pain [None]
  - Oropharyngeal pain [None]
  - Influenza like illness [None]
  - Pyrexia [None]
  - Cough [None]
  - Infusion related reaction [None]

NARRATIVE: CASE EVENT DATE: 20190819
